FAERS Safety Report 25276519 (Version 5)
Quarter: 2025Q4

REPORT INFORMATION
  Report Type: Report from Study
  Country: EU (occurrence: EU)
  Receive Date: 20250507
  Receipt Date: 20251111
  Transmission Date: 20260117
  Serious: Yes (Hospitalization)
  Sender: ABBVIE
  Company Number: EU-ABBVIE-6268321

PATIENT
  Age: 78 Year
  Sex: Male

DRUGS (1)
  1. FOSCARBIDOPA\FOSLEVODOPA [Suspect]
     Active Substance: FOSCARBIDOPA\FOSLEVODOPA
     Indication: Parkinson^s disease
     Dosage: CRN: 0.20 ML/H, CR: 0.23 ML/H, CRH: 0.25 ML/H, ED: 0.10 ML
     Route: 058
     Dates: start: 20240507

REACTIONS (11)
  - Blood pressure fluctuation [Not Recovered/Not Resolved]
  - Infusion site nodule [Not Recovered/Not Resolved]
  - Hypoaesthesia [Not Recovered/Not Resolved]
  - Musculoskeletal stiffness [Not Recovered/Not Resolved]
  - Liquid product physical issue [Unknown]
  - Panic reaction [Not Recovered/Not Resolved]
  - Device issue [Unknown]
  - Infusion site induration [Not Recovered/Not Resolved]
  - Infusion site haemorrhage [Unknown]
  - Weight decreased [Not Recovered/Not Resolved]
  - Anxiety [Not Recovered/Not Resolved]

NARRATIVE: CASE EVENT DATE: 20250101
